FAERS Safety Report 8780801 (Version 2)
Quarter: 2012Q4

REPORT INFORMATION
  Report Type: 
  Country: UA (occurrence: UA)
  Receive Date: 20120913
  Receipt Date: 20120917
  Transmission Date: 20130627
  Serious: Yes (Death)
  Sender: FDA-Public Use
  Company Number: UA-ASTRAZENECA-2012SE71093

PATIENT
  Age: 69 Year
  Sex: Male

DRUGS (7)
  1. BRILINTA [Suspect]
     Indication: ACUTE CORONARY SYNDROME
     Route: 048
  2. ACETYLSALICYLIC ACID [Concomitant]
  3. LOW MOLECULAR WEIGHT HEPARIN [Concomitant]
  4. BLOCKERS [Concomitant]
  5. ACE INHIBITOR [Concomitant]
  6. WARFARIN [Concomitant]
  7. AMIODARONE [Concomitant]

REACTIONS (1)
  - Aortic aneurysm [Fatal]
